FAERS Safety Report 18331635 (Version 2)
Quarter: 2020Q4

REPORT INFORMATION
  Report Type: Report from Study
  Country: US (occurrence: US)
  Receive Date: 20200930
  Receipt Date: 20201015
  Transmission Date: 20210113
  Serious: Yes (Hospitalization)
  Sender: FDA-Public Use
  Company Number: US-JNJFOC-A-NJ2019-189926

PATIENT
  Age: 53 Year
  Sex: Female
  Weight: 88.53 kg

DRUGS (16)
  1. VELETRI [Suspect]
     Active Substance: EPOPROSTENOL
     Dosage: 20 NG/KG, PER MIN
     Route: 042
  2. VELETRI [Suspect]
     Active Substance: EPOPROSTENOL
     Dosage: 13 NG/KG, PER MIN
     Route: 042
  3. CYMBALTA [Suspect]
     Active Substance: DULOXETINE HYDROCHLORIDE
     Indication: PRODUCT USED FOR UNKNOWN INDICATION
     Route: 065
  4. ADEMPAS [Suspect]
     Active Substance: RIOCIGUAT
     Dosage: UNK, TID
     Route: 065
  5. VELETRI [Suspect]
     Active Substance: EPOPROSTENOL
     Dosage: 19 NG/KG, PER MIN
     Route: 042
  6. ADEMPAS [Suspect]
     Active Substance: RIOCIGUAT
     Indication: PRODUCT USED FOR UNKNOWN INDICATION
     Dosage: UNK, BID
     Route: 065
  7. VELETRI [Suspect]
     Active Substance: EPOPROSTENOL
     Indication: PULMONARY ARTERIAL HYPERTENSION
     Route: 042
  8. VELETRI [Suspect]
     Active Substance: EPOPROSTENOL
     Dosage: 14 NG/KG, PER MIN
     Route: 042
  9. VELETRI [Suspect]
     Active Substance: EPOPROSTENOL
     Dosage: 23 NG/KG, PER MIN
     Route: 042
  10. MIDODRINE [Suspect]
     Active Substance: MIDODRINE
     Indication: PRODUCT USED FOR UNKNOWN INDICATION
     Route: 065
  11. VELETRI [Suspect]
     Active Substance: EPOPROSTENOL
     Dosage: 12 NG/KG, PER MIN
     Route: 042
  12. ADEMPAS [Suspect]
     Active Substance: RIOCIGUAT
     Dosage: 1 MG, TID
     Route: 065
  13. VELETRI [Suspect]
     Active Substance: EPOPROSTENOL
     Dosage: 26 NG
     Route: 042
  14. VELETRI [Suspect]
     Active Substance: EPOPROSTENOL
     Dosage: 22 NG/KG, PER MIN
     Route: 042
  15. VELETRI [Suspect]
     Active Substance: EPOPROSTENOL
     Route: 042
  16. LETAIRIS [Concomitant]
     Active Substance: AMBRISENTAN

REACTIONS (43)
  - Fatigue [Unknown]
  - Complication of device removal [Unknown]
  - Diarrhoea [Not Recovered/Not Resolved]
  - Nasopharyngitis [Unknown]
  - Dyspnoea [Unknown]
  - Catheter site nodule [Unknown]
  - Catheter site vesicles [Unknown]
  - Gait disturbance [Unknown]
  - Pain in jaw [Not Recovered/Not Resolved]
  - Nausea [Recovering/Resolving]
  - Headache [Not Recovered/Not Resolved]
  - Anxiety [Unknown]
  - Back pain [Unknown]
  - Seasonal allergy [Unknown]
  - Oropharyngeal pain [Unknown]
  - Cough [Unknown]
  - Catheter site pruritus [Unknown]
  - Product administration interrupted [Unknown]
  - Device occlusion [Recovered/Resolved]
  - Myalgia [Unknown]
  - Arrhythmia [Recovered/Resolved]
  - Dyspnoea exertional [Unknown]
  - Hypotension [Unknown]
  - Dysphonia [Unknown]
  - Face oedema [Unknown]
  - Arthralgia [Unknown]
  - Rash [Unknown]
  - Palpitations [Unknown]
  - Decreased appetite [Unknown]
  - Oedema peripheral [Unknown]
  - Superior vena cava syndrome [Unknown]
  - Musculoskeletal pain [Unknown]
  - Sinusitis [Unknown]
  - Dizziness [Unknown]
  - Catheter site erythema [Unknown]
  - Catheter management [Unknown]
  - Fluid retention [Unknown]
  - Bedridden [Unknown]
  - Pulmonary arterial hypertension [Unknown]
  - Abdominal discomfort [Unknown]
  - Unevaluable event [Unknown]
  - Abdominal pain upper [Not Recovered/Not Resolved]
  - Drug delivery system malfunction [Unknown]

NARRATIVE: CASE EVENT DATE: 2019
